FAERS Safety Report 15407278 (Version 2)
Quarter: 2019Q4

REPORT INFORMATION
  Report Type: Spontaneous
  Country: US (occurrence: US)
  Receive Date: 20180920
  Receipt Date: 20191031
  Transmission Date: 20200122
  Serious: No
  Sender: FDA-Public Use
  Company Number: US-SA-2018SA262878

PATIENT
  Age: 40 Year
  Sex: Male

DRUGS (1)
  1. DUPIXENT [Suspect]
     Active Substance: DUPILUMAB
     Indication: DERMATITIS
     Dosage: 300 MG, QOW
     Route: 058
     Dates: start: 20180803

REACTIONS (2)
  - Unevaluable event [Unknown]
  - Product dose omission [Unknown]
